FAERS Safety Report 23797567 (Version 2)
Quarter: 2024Q2

REPORT INFORMATION
  Report Type: Spontaneous
  Country: US (occurrence: US)
  Receive Date: 20240430
  Receipt Date: 20240504
  Transmission Date: 20240716
  Serious: Yes (Other)
  Sender: FDA-Public Use
  Company Number: US-CELLTRION INC.-2024US009793

PATIENT

DRUGS (2)
  1. BEVACIZUMAB [Suspect]
     Active Substance: BEVACIZUMAB
     Indication: Ovarian clear cell carcinoma
     Dosage: 3 DOSES
  2. PEMBROLIZUMAB [Suspect]
     Active Substance: PEMBROLIZUMAB
     Indication: Ovarian clear cell carcinoma
     Dosage: 7 DOSES OVER 6 MONTHS

REACTIONS (3)
  - Myocarditis [Unknown]
  - Endocarditis noninfective [Unknown]
  - Therapy partial responder [Unknown]
